FAERS Safety Report 13842091 (Version 1)
Quarter: 2017Q3

REPORT INFORMATION
  Report Type: Spontaneous
  Country: US (occurrence: US)
  Receive Date: 20170807
  Receipt Date: 20170807
  Transmission Date: 20171127
  Serious: No
  Sender: FDA-Public Use
  Company Number: None

PATIENT
  Age: 69 Year
  Sex: Male
  Weight: 101.15 kg

DRUGS (1)
  1. ALBIGLUTIDE [Suspect]
     Active Substance: ALBIGLUTIDE
     Indication: DIABETES MELLITUS
     Route: 058
     Dates: start: 20170323, end: 20170414

REACTIONS (5)
  - Diarrhoea [None]
  - Nausea [None]
  - Rhinorrhoea [None]
  - Ear disorder [None]
  - Vomiting [None]

NARRATIVE: CASE EVENT DATE: 20170414
